FAERS Safety Report 7317544-5 (Version None)
Quarter: 2011Q1

REPORT INFORMATION
  Report Type: 
  Country: None (occurrence: None)
  Receive Date: 20110226
  Receipt Date: 20101115
  Transmission Date: 20110831
  Serious: No
  Sender: FDA-Public Use
  Company Number: US-ALLERGAN-1014737US

PATIENT
  Age: 42 Year
  Sex: Female

DRUGS (1)
  1. BOTOX COSMETIC [Suspect]
     Indication: SKIN WRINKLING
     Dosage: 33 UNITS, SINGLE
     Route: 030
     Dates: start: 20101105, end: 20101105

REACTIONS (8)
  - HYPOAESTHESIA [None]
  - NECK PAIN [None]
  - MUSCULAR WEAKNESS [None]
  - SWELLING FACE [None]
  - FACIAL PARESIS [None]
  - HEAD DISCOMFORT [None]
  - MUSCULOSKELETAL STIFFNESS [None]
  - FATIGUE [None]
